FAERS Safety Report 8915668 (Version 3)
Quarter: 2013Q2

REPORT INFORMATION
  Report Type: Spontaneous
  Country: JP (occurrence: JP)
  Receive Date: 20121119
  Receipt Date: 20130402
  Transmission Date: 20140414
  Serious: Yes (Other)
  Sender: FDA-Public Use
  Company Number: JP-ELI_LILLY_AND_COMPANY-JP201211002615

PATIENT
  Age: 85 Year
  Sex: Female

DRUGS (2)
  1. FORTEO [Suspect]
     Dosage: UNK
     Route: 058
     Dates: start: 20121024
  2. ANALGESICS [Concomitant]
     Indication: PAIN

REACTIONS (8)
  - Fracture [Unknown]
  - Muscular weakness [Unknown]
  - Pain [Unknown]
  - Injection site bruising [Unknown]
  - Blood pressure increased [Unknown]
  - Joint swelling [Unknown]
  - Myalgia [Not Recovered/Not Resolved]
  - Posture abnormal [Unknown]
